FAERS Safety Report 4840556-8 (Version None)
Quarter: 2005Q4

REPORT INFORMATION
  Report Type: 
  Country: None (occurrence: None)
  Receive Date: 20051130
  Receipt Date: 20051013
  Transmission Date: 20060501
  Serious: No
  Sender: FDA-Public Use
  Company Number: US-BRISTOL-MYERS SQUIBB COMPANY-13144308

PATIENT
  Age: 49 Year
  Sex: Female
  Weight: 144 kg

DRUGS (17)
  1. ERBITUX [Suspect]
     Indication: COLON CANCER
     Route: 042
     Dates: start: 20050906
  2. CAMPTOSAR [Concomitant]
     Dates: end: 20051006
  3. GLUCOVANCE [Concomitant]
  4. HUMALOG [Concomitant]
  5. LANTUS [Concomitant]
  6. TOPROL-XL [Concomitant]
  7. LASIX [Concomitant]
  8. SPIRONOLACTONE [Concomitant]
  9. COUMADIN [Concomitant]
  10. POTASSIUM [Concomitant]
  11. ZOCOR [Concomitant]
  12. LORAZEPAM [Concomitant]
  13. CELEBREX [Concomitant]
  14. ZOFRAN [Concomitant]
     Indication: PREMEDICATION
     Route: 042
  15. DECADRON [Concomitant]
     Indication: PREMEDICATION
     Route: 042
  16. BENADRYL [Concomitant]
     Indication: PREMEDICATION
     Route: 042
  17. TYLENOL [Concomitant]
     Indication: PREMEDICATION
     Route: 048

REACTIONS (1)
  - EXTRAVASATION [None]
